FAERS Safety Report 8883232 (Version 1)
Quarter: 2012Q4

REPORT INFORMATION
  Report Type: 
  Country: BR (occurrence: BR)
  Receive Date: 20121102
  Receipt Date: 20121102
  Transmission Date: 20130627
  Serious: Yes (Other)
  Sender: FDA-Public Use
  Company Number: BR-PFIZER INC-2011296135

PATIENT
  Age: 22 Year
  Sex: Female
  Weight: 51 kg

DRUGS (1)
  1. TALIGLUCERASE ALFA [Suspect]
     Indication: GAUCHER^S DISEASE
     Dosage: 2400 IU, every 15 days
     Route: 042
     Dates: start: 20101026, end: 20110518

REACTIONS (4)
  - Wolff-Parkinson-White syndrome [Unknown]
  - Platelet count decreased [Recovered/Resolved]
  - Gallbladder disorder [Unknown]
  - Haemoglobin abnormal [Unknown]
